FAERS Safety Report 5797178-4 (Version None)
Quarter: 2008Q3

REPORT INFORMATION
  Report Type: 
  Country: None (occurrence: None)
  Receive Date: 20080701
  Receipt Date: 20080626
  Transmission Date: 20090109
  Serious: Yes (Other)
  Sender: FDA-Public Use
  Company Number: US-PFIZER INC-2008054073

PATIENT
  Sex: Male
  Weight: 77.272 kg

DRUGS (3)
  1. LIPITOR [Suspect]
     Indication: BLOOD CHOLESTEROL
  2. ASPIRIN [Concomitant]
  3. FISH OIL [Concomitant]

REACTIONS (5)
  - ARTERIAL OCCLUSIVE DISEASE [None]
  - FATIGUE [None]
  - GOUT [None]
  - HERPES SIMPLEX [None]
  - SINUS DISORDER [None]
